FAERS Safety Report 17263144 (Version 1)
Quarter: 2019Q4

REPORT INFORMATION
  Report Type: Spontaneous
  Country: US (occurrence: US)
  Receive Date: 20191218
  Receipt Date: 20191218
  Transmission Date: 20200122
  Serious: Yes (Hospitalization)
  Sender: FDA-Public Use
  Company Number: None

PATIENT
  Age: 24 Year
  Sex: Female

DRUGS (2)
  1. VIGABATRIN 500MG PWD (50=1CTN) [Suspect]
     Active Substance: VIGABATRIN
     Indication: LENNOX-GASTAUT SYNDROME
     Dosage: 500MG PWD (50=1CTN) 3 PACKETS/2X DAILY ORAL
     Route: 048
     Dates: start: 20190111
  2. EPIDIOLEX [Concomitant]
     Active Substance: CANNABIDIOL

REACTIONS (1)
  - Pneumonia [None]
